FAERS Safety Report 7049282-0 (Version None)
Quarter: 2010Q4

REPORT INFORMATION
  Report Type: 
  Country: None (occurrence: None)
  Receive Date: 20101018
  Receipt Date: 20101008
  Transmission Date: 20110411
  Serious: No
  Sender: FDA-Public Use
  Company Number: US-JNJFOC-20101002430

PATIENT
  Sex: Male
  Weight: 88.45 kg

DRUGS (1)
  1. DURAGESIC-100 [Suspect]
     Indication: SPINAL CORD DISORDER
     Route: 062

REACTIONS (1)
  - WRONG TECHNIQUE IN DRUG USAGE PROCESS [None]
